FAERS Safety Report 6219825-5 (Version None)
Quarter: 2009Q2

REPORT INFORMATION
  Report Type: 
  Country: None (occurrence: None)
  Receive Date: 20090609
  Receipt Date: 20090527
  Transmission Date: 20091009
  Serious: Yes (Hospitalization)
  Sender: FDA-Public Use
  Company Number: FR-JNJFOC-20090602078

PATIENT
  Sex: Female

DRUGS (11)
  1. IXPRIM [Suspect]
     Indication: PAIN
     Route: 048
  2. CONTRAMAL [Suspect]
     Indication: PAIN
     Route: 048
     Dates: start: 20080908, end: 20080916
  3. BI-PROFENID [Suspect]
     Indication: NEURALGIA
     Route: 048
     Dates: start: 20080908, end: 20080916
  4. PROFENID [Suspect]
     Indication: NEURALGIA
     Route: 042
     Dates: start: 20080908, end: 20080909
  5. MYOLASTAN [Suspect]
     Indication: DRUG USE FOR UNKNOWN INDICATION
     Route: 048
     Dates: start: 20080908, end: 20081015
  6. RIVOTRIL [Suspect]
     Indication: EPILEPSY
     Route: 048
     Dates: start: 20080908, end: 20081015
  7. AVLOCARDYL [Suspect]
     Indication: HYPERTENSION
     Route: 048
     Dates: start: 20080908, end: 20081015
  8. VOLTAREN [Suspect]
     Indication: DRUG USE FOR UNKNOWN INDICATION
     Route: 048
  9. DAFALGAN [Suspect]
     Indication: PAIN
     Route: 048
     Dates: start: 20080908, end: 20080930
  10. MOPRAL [Suspect]
     Indication: DRUG USE FOR UNKNOWN INDICATION
     Route: 048
     Dates: start: 20080908, end: 20080930
  11. CORTICOSTEROID NOS [Concomitant]
     Route: 065

REACTIONS (1)
  - HEPATITIS CHOLESTATIC [None]
